FAERS Safety Report 13681529 (Version 3)
Quarter: 2017Q3

REPORT INFORMATION
  Report Type: Spontaneous
  Country: US (occurrence: US)
  Receive Date: 20170623
  Receipt Date: 20170810
  Transmission Date: 20171127
  Serious: Yes (Death, Other)
  Sender: FDA-Public Use
  Company Number: US-009507513-1706USA010302

PATIENT
  Age: 71 Year
  Sex: Female

DRUGS (4)
  1. HEXADROL [Suspect]
     Active Substance: DEXAMETHASONE
     Dosage: UNK
     Route: 042
  2. VANCOMYCIN [Suspect]
     Active Substance: VANCOMYCIN
     Dosage: UNK
  3. ACYCLOVIR. [Suspect]
     Active Substance: ACYCLOVIR
     Dosage: UNK
  4. CEFTRIAXONE. [Suspect]
     Active Substance: CEFTRIAXONE
     Indication: ANTIVIRAL TREATMENT
     Dosage: UNK

REACTIONS (2)
  - Inflammation [Unknown]
  - Brain oedema [Fatal]
